FAERS Safety Report 23354880 (Version 1)
Quarter: 2024Q1

REPORT INFORMATION
  Report Type: Spontaneous
  Country: US (occurrence: US)
  Receive Date: 20240101
  Receipt Date: 20240101
  Transmission Date: 20240410
  Serious: No
  Sender: FDA-Public Use
  Company Number: US-ABBVIE-5560651

PATIENT
  Sex: Female

DRUGS (1)
  1. ESTRADIOL [Suspect]
     Active Substance: ESTRADIOL
     Indication: Atrophic vulvovaginitis
     Dosage: VAGINAL CREAM USP 0.01%
     Route: 065
     Dates: start: 2022

REACTIONS (5)
  - Aura [Unknown]
  - Food allergy [Unknown]
  - Fatigue [Unknown]
  - Myalgia [Unknown]
  - Adverse drug reaction [Unknown]
